FAERS Safety Report 6674423-4 (Version None)
Quarter: 2010Q2

REPORT INFORMATION
  Report Type: 
  Country: None (occurrence: None)
  Receive Date: 20100409
  Receipt Date: 20100329
  Transmission Date: 20101027
  Serious: Yes (Hospitalization, Other)
  Sender: FDA-Public Use
  Company Number: PHHY2010CA15230

PATIENT
  Sex: Female

DRUGS (12)
  1. EXJADE [Suspect]
     Indication: BREAST CANCER METASTATIC
     Dosage: 1250 MG DAILY
     Route: 048
     Dates: start: 20100122, end: 20100308
  2. EXJADE [Suspect]
     Indication: BONE MARROW DISORDER
  3. EXJADE [Suspect]
     Indication: IRON DEFICIENCY
  4. METOCLOPRAMIDE HYDROCHLORIDE [Concomitant]
     Dosage: 10 MG, QD
     Route: 048
     Dates: start: 20100224
  5. PIOGLITAZONE [Concomitant]
     Dosage: 30 MG, QD
     Route: 048
     Dates: start: 20100224
  6. BISOPROLOL [Concomitant]
     Dosage: 5 MG, QD
     Route: 048
     Dates: start: 20100224
  7. LORAZEPAM [Concomitant]
     Dosage: 1 MG, QD
     Route: 048
     Dates: start: 20100224
  8. MEGESTROL ACETATE [Concomitant]
  9. DILANTIN                                /AUS/ [Concomitant]
     Dosage: TID
     Route: 048
  10. VITAMINE D3 B.O.N. [Concomitant]
     Dosage: 1000 U, QD
     Route: 048
     Dates: start: 20100224
  11. PANTOLOC ^BYK GULDEN^ [Concomitant]
     Dosage: 40 MG, QD
     Route: 048
     Dates: start: 20100224
  12. COLACE [Concomitant]
     Dosage: UNK
     Dates: start: 20100224

REACTIONS (9)
  - APHASIA [None]
  - ASTHENIA [None]
  - BRAIN NEOPLASM [None]
  - BRAIN OEDEMA [None]
  - CENTRAL NERVOUS SYSTEM LESION [None]
  - COGNITIVE DISORDER [None]
  - CONVULSION [None]
  - HYPOAESTHESIA [None]
  - LOSS OF CONSCIOUSNESS [None]
